FAERS Safety Report 9570746 (Version 1)
Quarter: 2013Q4

REPORT INFORMATION
  Report Type: Report from Study
  Country: DE (occurrence: DE)
  Receive Date: 20131001
  Receipt Date: 20131001
  Transmission Date: 20140711
  Serious: Yes (Hospitalization)
  Sender: FDA-Public Use
  Company Number: DE-ROCHE-1280292

PATIENT
  Age: 55 Year
  Sex: Female
  Weight: 75 kg

DRUGS (6)
  1. TRASTUZUMAB EMTANSINE [Suspect]
     Indication: BREAST CANCER METASTATIC
     Route: 042
     Dates: start: 20130514, end: 20130910
  2. SEVREDOL [Concomitant]
     Route: 065
  3. NEXIUM-MUPS [Concomitant]
     Route: 048
  4. PALEXIA [Concomitant]
     Route: 048
  5. CALCIMAGON [Concomitant]
  6. ONDANSETRON [Concomitant]
     Route: 048

REACTIONS (1)
  - Haemorrhage [Unknown]
